FAERS Safety Report 8338156-0 (Version None)
Quarter: 2012Q2

REPORT INFORMATION
  Report Type: 
  Country: None (occurrence: None)
  Receive Date: 20120504
  Receipt Date: 20120427
  Transmission Date: 20120825
  Serious: Yes (Other)
  Sender: FDA-Public Use
  Company Number: US-AMGEN-USASP2012026705

PATIENT
  Age: 64 Year
  Sex: Female

DRUGS (1)
  1. ENBREL [Suspect]
     Indication: RHEUMATOID ARTHRITIS
     Dosage: 50 MG, QWK
     Dates: start: 20120308

REACTIONS (7)
  - PARAESTHESIA [None]
  - TREMOR [None]
  - MYALGIA [None]
  - BALANCE DISORDER [None]
  - HYPOAESTHESIA [None]
  - PRODUCTIVE COUGH [None]
  - MUSCULAR WEAKNESS [None]
